FAERS Safety Report 9988453 (Version 3)
Quarter: 2014Q1

REPORT INFORMATION
  Report Type: Spontaneous
  Country: US (occurrence: US)
  Receive Date: 20140310
  Receipt Date: 20140331
  Transmission Date: 20141002
  Serious: No
  Sender: FDA-Public Use
  Company Number: US-BIOGENIDEC-2013BI049196

PATIENT
  Age: 57 Year
  Sex: Female
  Weight: 76 kg

DRUGS (18)
  1. TECFIDERA [Suspect]
     Indication: MULTIPLE SCLEROSIS
     Route: 048
     Dates: start: 20130501
  2. TECFIDERA [Suspect]
     Indication: MULTIPLE SCLEROSIS
     Route: 048
     Dates: start: 2013
  3. NEURONTIN [Concomitant]
  4. NEURONTIN [Concomitant]
  5. AMPYRA [Concomitant]
  6. COZAAR [Concomitant]
  7. COZAAR [Concomitant]
  8. TOPROL XL [Concomitant]
  9. VITAMIN B COMPLEX [Concomitant]
  10. JOINT SUPPOR [Concomitant]
  11. GABAPENTIN [Concomitant]
  12. DIAZEPAM [Concomitant]
  13. DIAZEPAM [Concomitant]
  14. ALLEGRA [Concomitant]
  15. AVONEX [Concomitant]
  16. IBUPROFEN [Concomitant]
  17. LOSARTAN POTASSIUM [Concomitant]
  18. VESICARE [Concomitant]

REACTIONS (11)
  - Dermatitis acneiform [Recovered/Resolved]
  - Hordeolum [Not Recovered/Not Resolved]
  - Fall [Recovered/Resolved]
  - Hand fracture [Unknown]
  - Musculoskeletal chest pain [Unknown]
  - Gait disturbance [Unknown]
  - Bone contusion [Unknown]
  - Constipation [Unknown]
  - Chest pain [Unknown]
  - Rash pustular [Recovered/Resolved]
  - Dyspnoea [Recovered/Resolved]
